FAERS Safety Report 13030569 (Version 4)
Quarter: 2017Q2

REPORT INFORMATION
  Report Type: Spontaneous
  Country: US (occurrence: US)
  Receive Date: 20161215
  Receipt Date: 20170406
  Transmission Date: 20170830
  Serious: Yes (Hospitalization)
  Sender: FDA-Public Use
  Company Number: US-PFIZER INC-2016574754

PATIENT
  Age: 40 Year
  Sex: Female
  Weight: 61 kg

DRUGS (3)
  1. PREMARIN [Suspect]
     Active Substance: ESTROGENS, CONJUGATED
     Indication: HOT FLUSH
     Dosage: 1 DF (^^MAROON PILL^^), 1X/DAY
     Dates: start: 199501, end: 20020624
  2. PREMARIN [Suspect]
     Active Substance: ESTROGENS, CONJUGATED
     Indication: MENOPAUSAL SYMPTOMS
  3. PREMARIN [Suspect]
     Active Substance: ESTROGENS, CONJUGATED
     Indication: VAGINAL INFECTION

REACTIONS (4)
  - Blood disorder [Unknown]
  - Cerebral aneurysm perforation [Recovered/Resolved with Sequelae]
  - Subdural haemorrhage [Recovered/Resolved]
  - Vasospasm [Recovered/Resolved]

NARRATIVE: CASE EVENT DATE: 20020624
